FAERS Safety Report 8552683-2 (Version None)
Quarter: 2012Q3

REPORT INFORMATION
  Report Type: 
  Country: None (occurrence: None)
  Receive Date: 20120731
  Receipt Date: 20120725
  Transmission Date: 20120928
  Serious: Yes (Hospitalization)
  Sender: FDA-Public Use
  Company Number: US-COVIDIEN/TYCO HEALTHCARE/MALLINCKRODT-T201202938

PATIENT
  Age: 10 Month

DRUGS (1)
  1. SODIUM CHLORIDE [Suspect]
     Indication: SURGERY
     Dosage: UNK

REACTIONS (1)
  - HYPONATRAEMIA [None]
